FAERS Safety Report 5375643-1 (Version None)
Quarter: 2007Q2

REPORT INFORMATION
  Report Type: 
  Country: None (occurrence: None)
  Receive Date: 20070629
  Receipt Date: 20070618
  Transmission Date: 20071010
  Serious: Yes (Other)
  Sender: FDA-Public Use
  Company Number: US-PFIZER INC-2007051931

PATIENT
  Sex: Female
  Weight: 85.3 kg

DRUGS (5)
  1. CHANTIX [Suspect]
     Indication: EX-SMOKER
     Dates: start: 20070611, end: 20070615
  2. VYTORIN [Concomitant]
     Indication: BLOOD CHOLESTEROL
  3. ALPRAZOLAM [Concomitant]
     Indication: ANXIETY
  4. ALBUTEROL [Concomitant]
     Indication: ASTHMA
  5. ADVAIR DISKUS 100/50 [Concomitant]
     Indication: ASTHMA

REACTIONS (3)
  - INFLUENZA LIKE ILLNESS [None]
  - MYALGIA [None]
  - WEIGHT DECREASED [None]
